FAERS Safety Report 17576948 (Version 1)
Quarter: 2020Q1

REPORT INFORMATION
  Report Type: Spontaneous
  Country: GB (occurrence: GB)
  Receive Date: 20200324
  Receipt Date: 20200324
  Transmission Date: 20200409
  Serious: Yes (Hospitalization, Other)
  Sender: FDA-Public Use
  Company Number: GB-AMGEN-GBRSP2020047230

PATIENT
  Age: 59 Year
  Sex: Female
  Weight: 100 kg

DRUGS (10)
  1. OMEPRAZOLE. [Concomitant]
     Active Substance: OMEPRAZOLE
     Dosage: 20 MILLIGRAM, QD
     Dates: start: 20200120
  2. EUMOVATE [Concomitant]
     Active Substance: CLOBETASONE BUTYRATE
     Dosage: UNK
     Dates: start: 20200221
  3. LEVOTHYROXINE SODIUM. [Concomitant]
     Active Substance: LEVOTHYROXINE SODIUM
     Dosage: EACH MORNING
     Dates: start: 20200120
  4. PHENOXYMETHYLPENICILLIN [Concomitant]
     Active Substance: PENICILLIN V
     Dosage: 1000 MILLIGRAM, QD
     Dates: start: 20200205
  5. ADALIMUMAB [Suspect]
     Active Substance: ADALIMUMAB
     Indication: URINARY TRACT INFECTION
     Dosage: 40MG/0.8ML
     Route: 058
  6. FLUCLOXACILLIN [Concomitant]
     Active Substance: FLUCLOXACILLIN
     Dosage: 4000 MILLIGRAM, QD
     Dates: start: 20200205
  7. TACROLIMUS. [Concomitant]
     Active Substance: TACROLIMUS
     Dosage: APPLY ONCE OR TWICE A DAY AS TOLERATED AS DIRECTED
     Dates: start: 20191205
  8. PREDNISOLONE. [Concomitant]
     Active Substance: PREDNISOLONE
     Dosage: 20 MILLIGRAM, QD
     Dates: start: 20200205
  9. PREGABALIN. [Concomitant]
     Active Substance: PREGABALIN
     Dosage: 600 MILLIGRAM, QD
     Dates: start: 20200114
  10. LYMECYCLINE [Concomitant]
     Active Substance: LYMECYCLINE
     Dosage: 408 MILLIGRAM, QD
     Dates: start: 20200109

REACTIONS (1)
  - Dermatitis exfoliative generalised [Recovering/Resolving]

NARRATIVE: CASE EVENT DATE: 20200202
